FAERS Safety Report 4294280-3 (Version None)
Quarter: 2004Q1

REPORT INFORMATION
  Report Type: 
  Country: None (occurrence: None)
  Receive Date: 20040211
  Receipt Date: 20030811
  Transmission Date: 20041129
  Serious: No
  Sender: FDA-Public Use
  Company Number: US-GLAXOSMITHKLINE-A0420621A

PATIENT
  Age: 20 Year
  Sex: Female

DRUGS (4)
  1. LAMICTAL [Suspect]
     Indication: LYME DISEASE
     Route: 048
     Dates: start: 20030401, end: 20030414
  2. NEURONTIN [Concomitant]
  3. CONCERTA [Concomitant]
  4. PROVIGIL [Concomitant]

REACTIONS (5)
  - EYE SWELLING [None]
  - RASH [None]
  - RASH GENERALISED [None]
  - THROAT TIGHTNESS [None]
  - URTICARIA [None]
